FAERS Safety Report 17144590 (Version 1)
Quarter: 2019Q4

REPORT INFORMATION
  Report Type: Spontaneous
  Country: US (occurrence: US)
  Receive Date: 20191120
  Receipt Date: 20191120
  Transmission Date: 20200122
  Serious: No
  Sender: FDA-Public Use
  Company Number: None

PATIENT
  Age: 75 Year
  Sex: Male

DRUGS (1)
  1. INLYTA [Suspect]
     Active Substance: AXITINIB
     Route: 048
     Dates: start: 20191011

REACTIONS (3)
  - Dysphagia [None]
  - Toxicity to various agents [None]
  - Aphonia [None]

NARRATIVE: CASE EVENT DATE: 20191120
